FAERS Safety Report 8593925-7 (Version None)
Quarter: 2012Q3

REPORT INFORMATION
  Report Type: 
  Country: None (occurrence: None)
  Receive Date: 20120814
  Receipt Date: 20120813
  Transmission Date: 20120928
  Serious: Yes (Death)
  Sender: FDA-Public Use
  Company Number: US-ROCHE-1096608

PATIENT
  Sex: Female
  Weight: 59.02 kg

DRUGS (6)
  1. XOLAIR [Suspect]
     Indication: ASTHMA
     Route: 058
     Dates: start: 20081105, end: 20120515
  2. SYMBICORT [Concomitant]
     Indication: ASTHMA
     Dosage: 80/4.5
  3. ALBUTEROL [Concomitant]
  4. PROAIR HFA [Concomitant]
  5. NASONEX [Concomitant]
     Indication: RHINITIS ALLERGIC
  6. LISINOPRIL [Concomitant]

REACTIONS (2)
  - THROAT CANCER [None]
  - LUNG NEOPLASM MALIGNANT [None]
